FAERS Safety Report 13023677 (Version 1)
Quarter: 2016Q4

REPORT INFORMATION
  Report Type: Spontaneous
  Country: IL (occurrence: IL)
  Receive Date: 20161213
  Receipt Date: 20161213
  Transmission Date: 20170207
  Serious: Yes (Hospitalization, Other)
  Sender: FDA-Public Use
  Company Number: IL-SHIRE-IL201618715

PATIENT
  Age: 50 Year
  Sex: Female

DRUGS (1)
  1. VPRIV [Suspect]
     Active Substance: VELAGLUCERASE ALFA
     Indication: PRODUCT USED FOR UNKNOWN INDICATION
     Dosage: 800 IU/ (ALTERNATING WITH 1200 IU), 1X/2WKS
     Route: 041
     Dates: start: 200911

REACTIONS (1)
  - Parkinson^s disease [Unknown]
